FAERS Safety Report 14433778 (Version 2)
Quarter: 2018Q1

REPORT INFORMATION
  Report Type: Report from Study
  Country: BR (occurrence: BR)
  Receive Date: 20180124
  Receipt Date: 20180219
  Transmission Date: 20180509
  Serious: Yes (Hospitalization, Other)
  Sender: FDA-Public Use
  Company Number: BR-ALEXION-A201800463

PATIENT
  Age: 30 Year
  Sex: Male

DRUGS (4)
  1. SOLIRIS [Suspect]
     Active Substance: ECULIZUMAB
     Indication: PAROXYSMAL NOCTURNAL HAEMOGLOBINURIA
     Dosage: 600 MG, QW
     Route: 065
     Dates: start: 20180109
  2. PANTOPRAZOLE [Concomitant]
     Active Substance: PANTOPRAZOLE
     Indication: PRODUCT USED FOR UNKNOWN INDICATION
     Dosage: 20 MG, QD
     Route: 065
  3. MAREVAN [Concomitant]
     Active Substance: WARFARIN SODIUM
     Indication: PRODUCT USED FOR UNKNOWN INDICATION
     Dosage: 5 MG, QD
     Route: 065
  4. SOLIRIS [Suspect]
     Active Substance: ECULIZUMAB
     Dosage: 900 MG, Q2W
     Route: 065
     Dates: start: 20180206

REACTIONS (9)
  - Headache [Recovered/Resolved]
  - Haemoglobin decreased [Unknown]
  - Haemoglobin increased [Unknown]
  - Viral infection [Unknown]
  - Pollakiuria [Unknown]
  - Nasal congestion [Recovered/Resolved]
  - Asthenia [Unknown]
  - Blood lactate dehydrogenase decreased [Unknown]
  - Diarrhoea [Recovered/Resolved]

NARRATIVE: CASE EVENT DATE: 20180109
